FAERS Safety Report 14901780 (Version 5)
Quarter: 2019Q2

REPORT INFORMATION
  Report Type: Spontaneous
  Country: JP (occurrence: JP)
  Receive Date: 20180516
  Receipt Date: 20190425
  Transmission Date: 20190711
  Serious: Yes (Death, Other)
  Sender: FDA-Public Use
  Company Number: JP-PFIZER INC-2018199695

PATIENT
  Age: 75 Year
  Sex: Male
  Weight: 54 kg

DRUGS (6)
  1. LEUPRORELIN /00726902/ [Suspect]
     Active Substance: LEUPROLIDE ACETATE
     Indication: PROSTATE CANCER METASTATIC
     Dosage: UNK
     Route: 058
  2. LEUPRORELIN /00726902/ [Suspect]
     Active Substance: LEUPROLIDE ACETATE
     Indication: METASTASES TO LIVER
  3. OMEPRAZOLE. [Suspect]
     Active Substance: OMEPRAZOLE
     Indication: GASTROOESOPHAGEAL REFLUX DISEASE
     Route: 042
  4. CASODEX [Suspect]
     Active Substance: BICALUTAMIDE
     Indication: PROSTATE CANCER METASTATIC
     Dosage: UNK
     Route: 048
  5. CASODEX [Suspect]
     Active Substance: BICALUTAMIDE
     Indication: METASTASES TO LIVER
  6. CELECOX [Suspect]
     Active Substance: CELECOXIB
     Indication: PAIN
     Dosage: UNK
     Route: 048

REACTIONS (2)
  - Off label use [Unknown]
  - Interstitial lung disease [Fatal]
